FAERS Safety Report 5450060-4 (Version None)
Quarter: 2007Q3

REPORT INFORMATION
  Report Type: 
  Country: None (occurrence: None)
  Receive Date: 20070912
  Receipt Date: 20070912
  Transmission Date: 20080115
  Serious: Yes (Other)
  Sender: FDA-Public Use
  Company Number: A0680813A

PATIENT
  Age: 82 Year

DRUGS (7)
  1. FEOSOL IRON THERAPY TABLETS [Suspect]
     Indication: MINERAL SUPPLEMENTATION
     Dosage: 2TAB PER DAY
     Route: 048
     Dates: start: 20061001
  2. CENTRUM [Concomitant]
  3. ASPIRIN [Concomitant]
  4. PLAVIX [Concomitant]
  5. CALCIUM [Concomitant]
  6. METOPROLOL SUCCINATE [Concomitant]
  7. OMEPRAZOLE [Concomitant]

REACTIONS (3)
  - GASTROINTESTINAL HAEMORRHAGE [None]
  - OCCULT BLOOD POSITIVE [None]
  - THERAPEUTIC RESPONSE DECREASED [None]
